FAERS Safety Report 4741516-8 (Version None)
Quarter: 2005Q3

REPORT INFORMATION
  Report Type: 
  Country: None (occurrence: None)
  Receive Date: 20050808
  Receipt Date: 20050722
  Transmission Date: 20060218
  Serious: No
  Sender: FDA-Public Use
  Company Number: 11933

PATIENT

DRUGS (2)
  1. LEUCOVORIN [Suspect]
     Indication: RECTAL CANCER
     Dosage: 22.5 MG PER_CYCLE
     Route: 048
  2. UFT [Suspect]
     Indication: RECTAL CANCER
     Dosage: 150 MG/M2 PER_CYCLE/300 MG/M2 QD
     Route: 048

REACTIONS (1)
  - DIARRHOEA [None]
